FAERS Safety Report 8914649 (Version 1)
Quarter: 2012Q4

REPORT INFORMATION
  Report Type: Report from Study
  Country: DK (occurrence: DE)
  Receive Date: 20121119
  Receipt Date: 20121119
  Transmission Date: 20130627
  Serious: Yes (Hospitalization)
  Sender: FDA-Public Use
  Company Number: DE-FRI-1000040322

PATIENT
  Age: 41 Year
  Sex: Female

DRUGS (6)
  1. CITALOPRAM [Suspect]
     Dosage: 20 mg
     Route: 048
     Dates: end: 20120618
  2. CITALOPRAM [Interacting]
     Dosage: 30 mg
     Route: 048
     Dates: start: 20120619
  3. ZYPREXA [Interacting]
     Dosage: 2.5 mg
     Route: 048
     Dates: start: 20120706, end: 20120710
  4. ZYPREXA [Interacting]
     Dosage: 5 mg
     Route: 048
     Dates: start: 20120711, end: 20120823
  5. L-THYROXIN [Concomitant]
     Dosage: 0.075 mg
     Route: 048
  6. MAGNESIUM [Concomitant]
     Dosage: 240 mg
     Route: 048
     Dates: start: 20120621

REACTIONS (2)
  - Weight increased [Recovering/Resolving]
  - Potentiating drug interaction [Recovering/Resolving]
